FAERS Safety Report 9720091 (Version 2)
Quarter: 2014Q1

REPORT INFORMATION
  Report Type: Spontaneous
  Country: BR (occurrence: BR)
  Receive Date: 20131128
  Receipt Date: 20140106
  Transmission Date: 20141002
  Serious: Yes (Other)
  Sender: FDA-Public Use
  Company Number: BR-ELI_LILLY_AND_COMPANY-BR201311006079

PATIENT
  Age: 53 Year
  Sex: Male
  Weight: 75 kg

DRUGS (8)
  1. HUMULIN N [Suspect]
     Indication: DIABETES MELLITUS
     Dosage: 26 IU, EACH MORNING
     Route: 058
     Dates: start: 201111
  2. HUMULIN N [Suspect]
     Dosage: 4 IU, EACH MORNING
     Route: 058
     Dates: start: 201111
  3. HUMULIN N [Suspect]
     Dosage: 10 IU, EACH EVENING
     Route: 058
     Dates: start: 201111
  4. HUMULIN N [Suspect]
     Dosage: 4 IU, EACH EVENING
     Route: 058
     Dates: start: 201111
  5. HUMULIN R [Suspect]
     Indication: DIABETES MELLITUS
     Dosage: 26 IU, EACH MORNING
     Route: 058
     Dates: start: 201111
  6. HUMULIN R [Suspect]
     Dosage: 4 IU, EACH MORNING
     Route: 058
     Dates: start: 201111
  7. HUMULIN R [Suspect]
     Dosage: 10 IU, EACH EVENING
     Route: 058
     Dates: start: 201111
  8. HUMULIN R [Suspect]
     Dosage: 4 IU, EACH EVENING
     Route: 058
     Dates: start: 201111

REACTIONS (1)
  - Corneal oedema [Not Recovered/Not Resolved]
